FAERS Safety Report 6554953-6 (Version None)
Quarter: 2010Q1

REPORT INFORMATION
  Report Type: 
  Country: None (occurrence: None)
  Receive Date: 20100126
  Receipt Date: 20100126
  Transmission Date: 20100710
  Serious: Yes (Hospitalization)
  Sender: FDA-Public Use
  Company Number: None

PATIENT
  Sex: Male
  Weight: 2.45 kg

DRUGS (2)
  1. CARBOPLATIN [Suspect]
     Dosage: 64 MG
  2. ETOPOSIDE [Suspect]
     Dosage: 6.9 MG

REACTIONS (6)
  - ABDOMINAL DISTENSION [None]
  - CARDIO-RESPIRATORY ARREST [None]
  - CELL DEATH [None]
  - MALIGNANT NEOPLASM PROGRESSION [None]
  - OXYGEN SATURATION DECREASED [None]
  - RENAL FAILURE [None]
